FAERS Safety Report 13065191 (Version 1)
Quarter: 2016Q4

REPORT INFORMATION
  Report Type: Report from Study
  Country: US (occurrence: US)
  Receive Date: 20161227
  Receipt Date: 20161227
  Transmission Date: 20170207
  Serious: Yes (Other)
  Sender: FDA-Public Use
  Company Number: US-JNJFOC-20160822121

PATIENT
  Age: 79 Year
  Sex: Female

DRUGS (17)
  1. JANUVIA [Concomitant]
     Active Substance: SITAGLIPTIN PHOSPHATE
  2. LIPITOR [Concomitant]
     Active Substance: ATORVASTATIN CALCIUM
  3. NORVASC [Concomitant]
     Active Substance: AMLODIPINE BESYLATE
  4. ESTRACE [Concomitant]
     Active Substance: ESTRADIOL
  5. PSYLLIUM [Concomitant]
     Active Substance: PLANTAGO SEED
  6. VITAMIN D3 [Concomitant]
     Active Substance: CHOLECALCIFEROL
  7. CYANOCOBALAMIN. [Concomitant]
     Active Substance: CYANOCOBALAMIN
  8. IRBESARTAN HYDROCHLORIDE [Concomitant]
  9. IMBRUVICA [Suspect]
     Active Substance: IBRUTINIB
     Indication: CHRONIC LYMPHOCYTIC LEUKAEMIA
     Route: 048
     Dates: start: 20160813
  10. GLIPIZIDE. [Concomitant]
     Active Substance: GLIPIZIDE
  11. LIDOCAINE. [Concomitant]
     Active Substance: LIDOCAINE
  12. PANTOPRAZOLE [Concomitant]
     Active Substance: PANTOPRAZOLE SODIUM
  13. ASPIRIN. [Concomitant]
     Active Substance: ASPIRIN
  14. MUPIROCIN. [Concomitant]
     Active Substance: MUPIROCIN
  15. CARVEDILOL. [Concomitant]
     Active Substance: CARVEDILOL
  16. LORATADINE. [Concomitant]
     Active Substance: LORATADINE
  17. TRAMADOL. [Concomitant]
     Active Substance: TRAMADOL

REACTIONS (21)
  - Hypotension [Not Recovered/Not Resolved]
  - Asthenia [Not Recovered/Not Resolved]
  - Pain [Not Recovered/Not Resolved]
  - Productive cough [Not Recovered/Not Resolved]
  - Hypoaesthesia [Not Recovered/Not Resolved]
  - Gait disturbance [Unknown]
  - Pneumonitis [Recovering/Resolving]
  - Haemoptysis [Unknown]
  - Heart rate irregular [Not Recovered/Not Resolved]
  - Chills [Not Recovered/Not Resolved]
  - Pyrexia [Not Recovered/Not Resolved]
  - Blood uric acid increased [Not Recovered/Not Resolved]
  - Musculoskeletal pain [Not Recovered/Not Resolved]
  - Chest discomfort [Not Recovered/Not Resolved]
  - Burning sensation [Unknown]
  - Muscle spasticity [Not Recovered/Not Resolved]
  - Abnormal faeces [Not Recovered/Not Resolved]
  - Sputum discoloured [Not Recovered/Not Resolved]
  - Neck pain [Not Recovered/Not Resolved]
  - Hot flush [Not Recovered/Not Resolved]
  - Blood glucose decreased [Not Recovered/Not Resolved]

NARRATIVE: CASE EVENT DATE: 2016
